FAERS Safety Report 13727315 (Version 3)
Quarter: 2017Q4

REPORT INFORMATION
  Report Type: Report from Study
  Country: US (occurrence: US)
  Receive Date: 20170707
  Receipt Date: 20171010
  Transmission Date: 20180320
  Serious: Yes (Hospitalization, Other)
  Sender: FDA-Public Use
  Company Number: US-JNJFOC-20170613957

PATIENT
  Age: 82 Year
  Sex: Male

DRUGS (11)
  1. IMBRUVICA [Suspect]
     Active Substance: IBRUTINIB
     Indication: CHRONIC LYMPHOCYTIC LEUKAEMIA
     Route: 048
     Dates: start: 20170508
  2. COLACE [Concomitant]
     Active Substance: DOCUSATE SODIUM
  3. METOPROLOL. [Concomitant]
     Active Substance: METOPROLOL
  4. BUSPIRONE [Concomitant]
     Active Substance: BUSPIRONE HYDROCHLORIDE
  5. POTASSIUM CHLORIDE. [Concomitant]
     Active Substance: POTASSIUM CHLORIDE
  6. LASIX [Concomitant]
     Active Substance: FUROSEMIDE
  7. IMBRUVICA [Suspect]
     Active Substance: IBRUTINIB
     Indication: CHRONIC LYMPHOCYTIC LEUKAEMIA
     Route: 048
     Dates: start: 20170503, end: 2017
  8. PREDNISONE. [Concomitant]
     Active Substance: PREDNISONE
  9. MIRTAZAPINE. [Concomitant]
     Active Substance: MIRTAZAPINE
  10. ACYCLOVIR. [Concomitant]
     Active Substance: ACYCLOVIR
  11. DIGOX [Concomitant]
     Active Substance: DIGOXIN

REACTIONS (7)
  - Muscle atrophy [Unknown]
  - Pericardial effusion [Unknown]
  - Pneumonia [Unknown]
  - Staphylococcal infection [Unknown]
  - Dementia [Unknown]
  - Escherichia urinary tract infection [Unknown]
  - Dehydration [Unknown]

NARRATIVE: CASE EVENT DATE: 20171001
